FAERS Safety Report 21430195 (Version 1)
Quarter: 2022Q4

REPORT INFORMATION
  Report Type: Spontaneous
  Country: DE (occurrence: DE)
  Receive Date: 20221009
  Receipt Date: 20221009
  Transmission Date: 20230112
  Serious: Yes (Hospitalization)
  Sender: FDA-Public Use
  Company Number: DE-ADRED-08480-01

PATIENT
  Age: 79 Year
  Sex: Female
  Weight: 74 kg

DRUGS (7)
  1. HYDROCHLOROTHIAZIDE [Suspect]
     Active Substance: HYDROCHLOROTHIAZIDE
     Indication: Product used for unknown indication
     Dosage: 1 DOSAGE FORMS DAILY; 25 MG, 1-0-0-0, UNIT DOSE : 1 DF , FREQUENCY : OD
  2. NITROGLYCERIN [Concomitant]
     Active Substance: NITROGLYCERIN
     Indication: Product used for unknown indication
     Dosage: REQUIREMENT, GLYCERYL TRINITRATE (NITROGLYCERIN)
  3. IRBESARTAN [Concomitant]
     Active Substance: IRBESARTAN
     Indication: Product used for unknown indication
     Dosage: 1 DOSAGE FORMS DAILY; 300 MG, 1-0-0-0, UNIT DOSE : 1 DF , FREQUENCY : OD
  4. FOLIC ACID [Concomitant]
     Active Substance: FOLIC ACID
     Indication: Product used for unknown indication
     Dosage: 1 DOSAGE FORMS DAILY; 5 MG, 1-0-0-0, UNIT DOSE : 1 DF , FREQUENCY : OD
  5. METAMIZOLE [Concomitant]
     Active Substance: METAMIZOLE
     Indication: Product used for unknown indication
     Dosage: 500 MG, REQUIREMENT
  6. LEVOTHYROXINE SODIUM [Concomitant]
     Active Substance: LEVOTHYROXINE SODIUM
     Indication: Product used for unknown indication
     Dosage: 1 DOSAGE FORMS DAILY; 88 MCG, 1-0-0-0, UNIT DOSE : 1 DF , FREQUENCY : OD
  7. ETORICOXIB [Concomitant]
     Active Substance: ETORICOXIB
     Indication: Product used for unknown indication
     Dosage: 1 DOSAGE FORMS DAILY; 90 MG, 1-0-0-0, UNIT DOSE : 1 DF , FREQUENCY : OD

REACTIONS (10)
  - Vomiting [Unknown]
  - Nausea [Unknown]
  - Anaemia [Unknown]
  - Electrolyte imbalance [Unknown]
  - Hyponatraemia [Unknown]
  - Dizziness [Unknown]
  - Muscle spasms [Unknown]
  - General physical health deterioration [Unknown]
  - Headache [Unknown]
  - Muscular weakness [Unknown]
